FAERS Safety Report 11888678 (Version 4)
Quarter: 2016Q1

REPORT INFORMATION
  Report Type: Spontaneous
  Country: GB (occurrence: GB)
  Receive Date: 20160105
  Receipt Date: 20160329
  Transmission Date: 20160526
  Serious: Yes (Other)
  Sender: FDA-Public Use
  Company Number: GB-JNJFOC-20160100318

PATIENT
  Age: 43 Year
  Sex: Male
  Weight: 76 kg

DRUGS (3)
  1. SIMPONI [Suspect]
     Active Substance: GOLIMUMAB
     Indication: PRODUCT USED FOR UNKNOWN INDICATION
     Route: 058
     Dates: start: 20151218
  2. PENTASA [Concomitant]
     Active Substance: MESALAMINE
     Indication: DRUG EFFECT DECREASED
     Route: 065
     Dates: start: 201407
  3. MYCOPHENOLATE [Concomitant]
     Active Substance: MYCOPHENOLIC ACID
     Indication: DRUG INEFFECTIVE
     Route: 065
     Dates: start: 201503

REACTIONS (3)
  - Tonsillitis [Recovered/Resolved]
  - Frequent bowel movements [Recovering/Resolving]
  - Haematochezia [Unknown]

NARRATIVE: CASE EVENT DATE: 201512
